FAERS Safety Report 4504538-8 (Version None)
Quarter: 2004Q4

REPORT INFORMATION
  Report Type: 
  Country: None (occurrence: None)
  Receive Date: 20041116
  Receipt Date: 20041102
  Transmission Date: 20050328
  Serious: Yes (Hospitalization)
  Sender: FDA-Public Use
  Company Number: A01200405501

PATIENT
  Age: 94 Year
  Sex: Female

DRUGS (5)
  1. ZOLPIDEM TARTRATE [Suspect]
     Indication: SLEEP DISORDER
     Dosage: 10 MG HS ORAL
     Route: 048
     Dates: start: 20040923, end: 20040925
  2. ADALAT OROS (NIFEDIPINE) [Concomitant]
  3. METOPROLOL [Concomitant]
  4. ISORDIL [Concomitant]
  5. ACETYLSALICYLIC ACID SRT [Concomitant]

REACTIONS (2)
  - DELIRIUM [None]
  - PSYCHOTIC DISORDER [None]
